FAERS Safety Report 7539820-3 (Version None)
Quarter: 2011Q2

REPORT INFORMATION
  Report Type: 
  Country: None (occurrence: None)
  Receive Date: 20110609
  Receipt Date: 20110609
  Transmission Date: 20111010
  Serious: No
  Sender: FDA-Public Use
  Company Number: None

PATIENT
  Age: 49 Year
  Sex: Male
  Weight: 74.8435 kg

DRUGS (1)
  1. ABILIFY [Suspect]
     Dates: start: 20040801, end: 20040802

REACTIONS (2)
  - DYSGRAPHIA [None]
  - TREMOR [None]
